FAERS Safety Report 4390506-6 (Version None)
Quarter: 2004Q2

REPORT INFORMATION
  Report Type: 
  Country: None (occurrence: None)
  Receive Date: 20040630
  Receipt Date: 20040630
  Transmission Date: 20050107
  Serious: Yes (Life-Threatening)
  Sender: FDA-Public Use
  Company Number: None

PATIENT
  Sex: Female
  Weight: 51.2565 kg

DRUGS (21)
  1. NAMENDA [Suspect]
     Indication: DEMENTIA ALZHEIMER'S TYPE
     Dosage: 10 MG BID PO
     Route: 048
     Dates: start: 20040416, end: 20040422
  2. NAMENDA [Suspect]
     Indication: DEMENTIA ALZHEIMER'S TYPE
     Dosage: 10 MG BID PO
     Route: 048
     Dates: start: 20040423, end: 20040429
  3. NAMENDA [Suspect]
     Indication: DEMENTIA ALZHEIMER'S TYPE
     Dosage: 10 MG BID PO
     Route: 048
     Dates: start: 20040430, end: 20040506
  4. NAMENDA [Suspect]
     Indication: DEMENTIA ALZHEIMER'S TYPE
     Dosage: 10 MG BID PO
     Route: 048
     Dates: start: 20040507, end: 20040611
  5. NAMENDA [Suspect]
     Indication: DEMENTIA ALZHEIMER'S TYPE
     Dosage: 10 MG BID PO
     Route: 048
     Dates: start: 20040507
  6. MIRALAX POWDER [Concomitant]
  7. REMERON [Concomitant]
  8. ARICEPT [Concomitant]
  9. DETROL LA [Concomitant]
  10. MOBIC [Concomitant]
  11. MULTI-VITAMIN [Concomitant]
  12. SYNTHROID [Concomitant]
  13. TOPROL-XL [Concomitant]
  14. DOCUSATE SODIUM [Concomitant]
  15. STARLIX [Concomitant]
  16. TYLENOL [Concomitant]
  17. CLONIDINE HCL [Concomitant]
  18. ENULOSE [Concomitant]
  19. MILK OF MAGNESIA TAB [Concomitant]
  20. RISPERDAL [Concomitant]
  21. SLIDING SCALE INSULIN [Concomitant]

REACTIONS (5)
  - ABNORMAL BEHAVIOUR [None]
  - ANGER [None]
  - EMOTIONAL DISTRESS [None]
  - RESTLESSNESS [None]
  - SUICIDAL IDEATION [None]
